FAERS Safety Report 6726673-6 (Version None)
Quarter: 2010Q2

REPORT INFORMATION
  Report Type: 
  Country: None (occurrence: None)
  Receive Date: 20100514
  Receipt Date: 20100506
  Transmission Date: 20101027
  Serious: Yes (Hospitalization)
  Sender: FDA-Public Use
  Company Number: NL-AMGEN-QUU411439

PATIENT
  Age: 61 Year
  Sex: Female

DRUGS (3)
  1. ENBREL [Suspect]
     Indication: RHEUMATOID ARTHRITIS
     Dates: start: 20100421, end: 20100428
  2. METHOTREXATE [Suspect]
  3. PREDNISOLONE [Concomitant]

REACTIONS (5)
  - CONDITION AGGRAVATED [None]
  - FEELING OF BODY TEMPERATURE CHANGE [None]
  - HYPERHIDROSIS [None]
  - MALAISE [None]
  - RESTLESSNESS [None]
